FAERS Safety Report 23232836 (Version 1)
Quarter: 2023Q4

REPORT INFORMATION
  Report Type: Spontaneous
  Country: US (occurrence: US)
  Receive Date: 20231128
  Receipt Date: 20231128
  Transmission Date: 20240109
  Serious: Yes (Hospitalization, Other)
  Sender: FDA-Public Use
  Company Number: US-BRISTOL-MYERS SQUIBB COMPANY-2023-167137

PATIENT
  Age: 80 Year
  Sex: Male
  Weight: 69.85 kg

DRUGS (1)
  1. POMALYST [Suspect]
     Active Substance: POMALIDOMIDE
     Indication: Plasma cell myeloma
     Dosage: DAILY FOR 14DAYS
     Route: 048
     Dates: start: 20230614

REACTIONS (3)
  - Diverticulitis [Unknown]
  - Haemorrhage [Unknown]
  - Peripheral swelling [Unknown]
